FAERS Safety Report 13805213 (Version 1)
Quarter: 2017Q3

REPORT INFORMATION
  Report Type: Report from Study
  Country: US (occurrence: US)
  Receive Date: 20170728
  Receipt Date: 20170728
  Transmission Date: 20171127
  Serious: Yes (Hospitalization, Other)
  Sender: FDA-Public Use
  Company Number: US-EMD SERONO-E2B_80053768

PATIENT
  Age: 54 Year
  Sex: Female

DRUGS (1)
  1. REBIF [Suspect]
     Active Substance: INTERFERON BETA-1A
     Indication: MULTIPLE SCLEROSIS
     Route: 058
     Dates: start: 20111130

REACTIONS (7)
  - Haemoglobin decreased [Recovered/Resolved]
  - Joint range of motion decreased [Not Recovered/Not Resolved]
  - Stress [Not Recovered/Not Resolved]
  - Osteoarthritis [Recovering/Resolving]
  - Post procedural complication [Not Recovered/Not Resolved]
  - Scoliosis [Not Recovered/Not Resolved]
  - Thrombosis [Not Recovered/Not Resolved]

NARRATIVE: CASE EVENT DATE: 201608
